FAERS Safety Report 5081939-3 (Version None)
Quarter: 2006Q3

REPORT INFORMATION
  Report Type: 
  Country: None (occurrence: None)
  Receive Date: 20060811
  Receipt Date: 20060731
  Transmission Date: 20061208
  Serious: Yes (Other)
  Sender: FDA-Public Use
  Company Number: 2006EU002243

PATIENT
  Age: 56 Year
  Sex: Female

DRUGS (3)
  1. PROGRAF [Suspect]
     Indication: RENAL TRANSPLANT
     Dosage: 7 MG/D
  2. METHYLPREDNISOLONE [Suspect]
     Indication: RENAL TRANSPLANT
     Dosage: 16 MG/D
  3. MYCOPHENOLATE MOFETIL [Suspect]
     Dosage: 1.5 G/D

REACTIONS (6)
  - BACTERIAL INFECTION [None]
  - CANDIDIASIS [None]
  - COMPLICATIONS OF TRANSPLANTED KIDNEY [None]
  - CULTURE URINE POSITIVE [None]
  - DRUG TOXICITY [None]
  - PYELONEPHRITIS ACUTE [None]
